FAERS Safety Report 4576124-5 (Version None)
Quarter: 2005Q1

REPORT INFORMATION
  Report Type: 
  Country: None (occurrence: None)
  Receive Date: 20050204
  Receipt Date: 20050126
  Transmission Date: 20050727
  Serious: Yes (Hospitalization)
  Sender: FDA-Public Use
  Company Number: GXKR2005IT00507

PATIENT
  Age: 66 Year
  Sex: Male

DRUGS (1)
  1. RANITIDINE [Suspect]
     Indication: DUODENAL ULCER
     Dosage: ORAL
     Route: 048

REACTIONS (8)
  - ARRHYTHMIA SUPRAVENTRICULAR [None]
  - OCULAR VASCULAR DISORDER [None]
  - PAPILLOEDEMA [None]
  - RETINAL EXUDATES [None]
  - RETINAL HAEMORRHAGE [None]
  - RETINAL VEIN OCCLUSION [None]
  - VISUAL DISTURBANCE [None]
  - VISUAL FIELD DEFECT [None]
